FAERS Safety Report 20955258 (Version 1)
Quarter: 2022Q2

REPORT INFORMATION
  Report Type: Spontaneous
  Country: US (occurrence: None)
  Receive Date: 20220613
  Receipt Date: 20220613
  Transmission Date: 20220720
  Serious: Yes (Death)
  Sender: FDA-Public Use
  Company Number: None

PATIENT
  Sex: Female

DRUGS (1)
  1. HUMIRA [Suspect]
     Active Substance: ADALIMUMAB
     Indication: Rheumatoid arthritis
     Dosage: 40/0.4 MG/ML?INJECT 1 PEN SUBCUTANEOUSLY EVERY TWO WEEKS ?
     Route: 058
     Dates: start: 20210415

REACTIONS (1)
  - Death [None]
